FAERS Safety Report 5218811-1 (Version None)
Quarter: 2007Q1

REPORT INFORMATION
  Report Type: 
  Country: None (occurrence: None)
  Receive Date: 20070122
  Receipt Date: 20070122
  Transmission Date: 20070707
  Serious: Yes (Hospitalization)
  Sender: FDA-Public Use
  Company Number: None

PATIENT
  Age: 77 Year
  Sex: Male
  Weight: 68.0396 kg

DRUGS (1)
  1. ATENOLOL [Suspect]
     Dosage: 50 MG  DAILY
     Dates: start: 20061202, end: 20061211

REACTIONS (1)
  - HEART RATE DECREASED [None]
